FAERS Safety Report 8619262-X (Version None)
Quarter: 2012Q3

REPORT INFORMATION
  Report Type: 
  Country: None (occurrence: None)
  Receive Date: 20120824
  Receipt Date: 20120817
  Transmission Date: 20120928
  Serious: Yes (Hospitalization)
  Sender: FDA-Public Use
  Company Number: JP-B.I. PHARMACEUTICALS,INC./RIDGEFIELD-2012-BP-11129NB

PATIENT
  Sex: Female

DRUGS (11)
  1. ADALAT [Concomitant]
     Indication: HYPERTENSION
     Dosage: 20 MG
     Route: 048
     Dates: end: 20111212
  2. PRADAXA [Suspect]
     Indication: ATRIAL FIBRILLATION
     Dosage: 220 MG
     Route: 048
     Dates: start: 20110808
  3. MICARDIS [Concomitant]
     Indication: HYPERTENSION
     Dosage: 20 MG
     Route: 048
     Dates: start: 20110808
  4. GLAKAY [Concomitant]
     Indication: OSTEOPOROSIS
     Dosage: 30 MG
     Route: 048
     Dates: end: 20111205
  5. ALENDRONATE SODIUM [Concomitant]
     Indication: OSTEOPOROSIS
     Dosage: 30 MG
     Route: 048
     Dates: start: 20111205
  6. MUCOSTA [Concomitant]
     Indication: GASTRIC ULCER
     Dosage: 200 MG
     Route: 048
     Dates: start: 20120213
  7. PROTECADIN [Concomitant]
     Indication: GASTRIC ULCER
     Dosage: 20 MG
     Route: 048
     Dates: start: 20110808
  8. ALFAROL [Concomitant]
     Indication: OSTEOPOROSIS
     Dosage: 1 MG
     Route: 048
     Dates: end: 20111205
  9. DEPAS [Concomitant]
     Indication: ANXIETY DISORDER
     Dosage: 1 MG
     Route: 048
     Dates: start: 20110905
  10. CALCIUM LACTATE AND PREPARATIONS [Concomitant]
     Indication: OSTEOPOROSIS
     Dosage: 2 G
     Route: 048
     Dates: end: 20111205
  11. SEPAMIT-R [Concomitant]
     Indication: HYPERTENSION
     Dosage: 20 MG
     Route: 048
     Dates: start: 20111212

REACTIONS (2)
  - DECREASED APPETITE [None]
  - PANCREATIC CARCINOMA [None]
